FAERS Safety Report 14823170 (Version 2)
Quarter: 2018Q4

REPORT INFORMATION
  Report Type: Report from Study
  Country: US (occurrence: US)
  Receive Date: 20180427
  Receipt Date: 20181024
  Transmission Date: 20190204
  Serious: Yes (Death, Hospitalization)
  Sender: FDA-Public Use
  Company Number: US-ACTELION-A-NJ2017-164896

PATIENT
  Age: 67 Year
  Sex: Female

DRUGS (1)
  1. OPSUMIT [Suspect]
     Active Substance: MACITENTAN
     Indication: PULMONARY HYPERTENSION
     Dosage: 10 MG, QD
     Route: 048
     Dates: start: 20170222, end: 20180409

REACTIONS (5)
  - Multiple organ dysfunction syndrome [Fatal]
  - Blood pressure abnormal [Unknown]
  - Septic shock [Fatal]
  - Blood bilirubin increased [Unknown]
  - Fall [Unknown]

NARRATIVE: CASE EVENT DATE: 20171216
